FAERS Safety Report 4619691-5 (Version None)
Quarter: 2005Q1

REPORT INFORMATION
  Report Type: 
  Country: None (occurrence: None)
  Receive Date: 20050317
  Receipt Date: 20050317
  Transmission Date: 20050727
  Serious: Yes (Life-Threatening)
  Sender: FDA-Public Use
  Company Number: None

PATIENT
  Age: 58 Year
  Sex: Male

DRUGS (6)
  1. OXCARBAZEPINE [Suspect]
  2. AMLODIPINE [Concomitant]
  3. FUROSEMIDE [Concomitant]
  4. POTASSIUM CHLORIDE [Concomitant]
  5. OLANZAPINE [Concomitant]
  6. METOPROLOL TARTRATE [Concomitant]

REACTIONS (2)
  - HALLUCINATION, AUDITORY [None]
  - SUICIDAL IDEATION [None]
